FAERS Safety Report 13997763 (Version 1)
Quarter: 2017Q3

REPORT INFORMATION
  Report Type: Spontaneous
  Country: US (occurrence: US)
  Receive Date: 20170921
  Receipt Date: 20170921
  Transmission Date: 20171128
  Serious: No
  Sender: FDA-Public Use
  Company Number: US-PFIZER INC-2017406839

PATIENT
  Age: 64 Year
  Sex: Female
  Weight: 124.5 kg

DRUGS (1)
  1. METHOTREXATE SODIUM. [Suspect]
     Active Substance: METHOTREXATE SODIUM
     Indication: PSORIATIC ARTHROPATHY
     Dosage: 10 MG, WEEKLY (INJECTION ONCE A WEEK IM)
     Route: 030
     Dates: start: 2016, end: 201708

REACTIONS (1)
  - Liver function test abnormal [Unknown]
